FAERS Safety Report 13297992 (Version 1)
Quarter: 2017Q1

REPORT INFORMATION
  Report Type: Spontaneous
  Country: US (occurrence: US)
  Receive Date: 20170303
  Receipt Date: 20170303
  Transmission Date: 20170428
  Serious: No
  Sender: FDA-Public Use
  Company Number: None

PATIENT
  Age: 58 Year
  Sex: Female

DRUGS (1)
  1. TYSABRI [Suspect]
     Active Substance: NATALIZUMAB
     Indication: MULTIPLE SCLEROSIS
     Dosage: EVERY 4 WEEKS IV
     Route: 042
     Dates: start: 20150825

REACTIONS (2)
  - Urinary tract infection [None]
  - Micturition urgency [None]

NARRATIVE: CASE EVENT DATE: 20170201
